FAERS Safety Report 6381801-X (Version None)
Quarter: 2009Q3

REPORT INFORMATION
  Report Type: 
  Country: None (occurrence: None)
  Receive Date: 20090930
  Receipt Date: 20090917
  Transmission Date: 20100115
  Serious: Yes (Hospitalization)
  Sender: FDA-Public Use
  Company Number: NO-RANBAXY-2009RR-28174

PATIENT
  Age: 31 Year
  Sex: Female

DRUGS (5)
  1. LORAZEPAM [Suspect]
     Indication: MANIA
     Dosage: 2.5 MG, UNK
     Route: 048
  2. OLANZAPINE [Suspect]
     Indication: MANIA
     Dosage: 15 MG, UNK
     Route: 048
  3. OLANZAPINE [Suspect]
     Dosage: 5 MG, UNK
  4. OLANZAPINE [Suspect]
     Dosage: 5 MG, UNK
  5. ZOPICLONE [Suspect]
     Dosage: 7.5 MG, QD

REACTIONS (3)
  - DRUG INTERACTION [None]
  - HYPOTENSION [None]
  - LOSS OF CONSCIOUSNESS [None]
